FAERS Safety Report 9179017 (Version 1)
Quarter: 2012Q4

REPORT INFORMATION
  Report Type: Report from Study
  Country: US (occurrence: US)
  Receive Date: 20121029
  Receipt Date: 20121029
  Transmission Date: 20130627
  Serious: Yes (Hospitalization, Other)
  Sender: FDA-Public Use
  Company Number: US-ROCHE-1145584

PATIENT
  Age: 27 None
  Sex: Female
  Weight: 48.58 kg

DRUGS (13)
  1. CLONAZEPAM [Suspect]
     Indication: ANXIETY
     Route: 065
  2. CLONAZEPAM [Suspect]
     Indication: BIPOLAR DISORDER
  3. HUMIRA [Suspect]
     Indication: CROHN^S DISEASE
     Route: 065
     Dates: start: 200903
  4. HUMIRA [Suspect]
     Route: 065
     Dates: start: 201005
  5. DEPAKOTE ER [Suspect]
     Indication: PRODUCT USED FOR UNKNOWN INDICATION
     Route: 065
  6. SEROQUEL [Suspect]
     Indication: PRODUCT USED FOR UNKNOWN INDICATION
     Route: 065
  7. MESALAZINE [Concomitant]
     Indication: CROHN^S DISEASE
     Route: 065
  8. DEXLANSOPRAZOLE [Concomitant]
     Indication: GASTROOESOPHAGEAL REFLUX DISEASE
     Dosage: daily
     Route: 065
  9. LISDEXAMFETAMINE MESILATE [Concomitant]
     Route: 065
  10. DOCUSATE DE SODIUM [Concomitant]
     Route: 065
  11. PRAMIPEXOLE DIHYDROCHLORIDE [Concomitant]
     Route: 065
  12. CEFIXIME [Concomitant]
     Dosage: 5-10 mg
     Route: 065
  13. MESALAZINE [Concomitant]
     Route: 054

REACTIONS (13)
  - Mobility decreased [Unknown]
  - Compartment syndrome [Unknown]
  - Rhabdomyolysis [Unknown]
  - Peroneal nerve palsy [Unknown]
  - Nerve compression [Unknown]
  - Rectal ulcer [Unknown]
  - Tendonitis [Unknown]
  - Malaise [Unknown]
  - Nausea [Unknown]
  - Dehydration [Unknown]
  - Abdominal pain upper [Unknown]
  - Wrong technique in drug usage process [Unknown]
  - Incorrect dose administered [Unknown]
